FAERS Safety Report 15325790 (Version 1)
Quarter: 2018Q3

REPORT INFORMATION
  Report Type: Spontaneous
  Country: US (occurrence: US)
  Receive Date: 20180822
  Receipt Date: 20180822
  Transmission Date: 20181010
  Serious: No
  Sender: FDA-Public Use
  Company Number: None

PATIENT
  Age: 55 Year
  Sex: Female

DRUGS (1)
  1. WAYLIVRA [Suspect]
     Active Substance: VOLANESORSEN SODIUM
     Indication: HYPERCHYLOMICRONAEMIA
     Dates: start: 20150101

REACTIONS (1)
  - Adverse drug reaction [None]
